FAERS Safety Report 14933954 (Version 1)
Quarter: 2018Q2

REPORT INFORMATION
  Report Type: Report from Study
  Country: BR (occurrence: BR)
  Receive Date: 20180524
  Receipt Date: 20180524
  Transmission Date: 20180711
  Serious: Yes (Other)
  Sender: FDA-Public Use
  Company Number: PHHY2018BR004626

PATIENT
  Sex: Female
  Weight: 65 kg

DRUGS (1)
  1. ACLASTA [Suspect]
     Active Substance: ZOLEDRONIC ACID
     Indication: OSTEOPOROSIS
     Dosage: 1 DF (5 MG/100 ML), Q12MO
     Route: 042
     Dates: start: 2012, end: 2012

REACTIONS (9)
  - Weight decreased [Recovered/Resolved]
  - Dysuria [Recovering/Resolving]
  - Anaemia [Unknown]
  - Malaise [Unknown]
  - Crying [Unknown]
  - Urinary tract infection [Recovering/Resolving]
  - Ulcer [Unknown]
  - Depression [Unknown]
  - Fall [Unknown]

NARRATIVE: CASE EVENT DATE: 2016
